FAERS Safety Report 15537754 (Version 2)
Quarter: 2018Q4

REPORT INFORMATION
  Report Type: Spontaneous
  Country: US (occurrence: US)
  Receive Date: 20181022
  Receipt Date: 20181105
  Transmission Date: 20190205
  Serious: No
  Sender: FDA-Public Use
  Company Number: US-IPSEN BIOPHARMACEUTICALS, INC.-2018-15906

PATIENT
  Sex: Female
  Weight: 87.5 kg

DRUGS (15)
  1. SOMATULINE DEPOT [Suspect]
     Active Substance: LANREOTIDE ACETATE
     Indication: ACROMEGALY
  2. SYNTHROID [Concomitant]
     Active Substance: LEVOTHYROXINE SODIUM
  3. TOPAMAX [Concomitant]
     Active Substance: TOPIRAMATE
  4. OSCAL [Concomitant]
     Active Substance: CALCIUM CARBONATE
  5. DOCUSATE [Concomitant]
     Active Substance: DOCUSATE
  6. FLONASE [Concomitant]
     Active Substance: FLUTICASONE PROPIONATE
  7. KEPPRA [Concomitant]
     Active Substance: LEVETIRACETAM
  8. MOBIC [Concomitant]
     Active Substance: MELOXICAM
  9. MULTI VITAMINS [Concomitant]
     Active Substance: VITAMINS
  10. RESTASIS [Concomitant]
     Active Substance: CYCLOSPORINE
  11. VITAMIN C [Concomitant]
     Active Substance: ASCORBIC ACID
  12. FISH OIL [Concomitant]
     Active Substance: FISH OIL
  13. NEUROTIN [Concomitant]
     Active Substance: GABAPENTIN
  14. ZANAFLEX [Concomitant]
     Active Substance: TIZANIDINE HYDROCHLORIDE
  15. ALPHAGAN P [Concomitant]
     Active Substance: BRIMONIDINE TARTRATE

REACTIONS (1)
  - Injection site pain [Not Recovered/Not Resolved]
